FAERS Safety Report 7288384-0 (Version None)
Quarter: 2011Q1

REPORT INFORMATION
  Report Type: 
  Country: None (occurrence: None)
  Receive Date: 20110211
  Receipt Date: 20110209
  Transmission Date: 20110831
  Serious: Yes (Hospitalization)
  Sender: FDA-Public Use
  Company Number: A0771649A

PATIENT
  Age: 46 Year
  Sex: Female
  Weight: 136.4 kg

DRUGS (6)
  1. PREDNISONE [Concomitant]
  2. AVANDIA [Suspect]
     Indication: DIABETES MELLITUS
     Dosage: 8MG TWICE PER DAY
     Route: 048
     Dates: start: 20050101, end: 20070101
  3. INSULIN [Concomitant]
  4. LIPITOR [Concomitant]
  5. SINGULAIR [Concomitant]
  6. MULTIVITAMIN [Concomitant]

REACTIONS (3)
  - CEREBROVASCULAR ACCIDENT [None]
  - CARDIAC FAILURE CONGESTIVE [None]
  - CARDIAC DISORDER [None]
